FAERS Safety Report 19304871 (Version 3)
Quarter: 2021Q2

REPORT INFORMATION
  Report Type: Spontaneous
  Country: US (occurrence: US)
  Receive Date: 20210525
  Receipt Date: 20210624
  Transmission Date: 20210717
  Serious: No
  Sender: FDA-Public Use
  Company Number: US-GLAXOSMITHKLINE-US2021109051

PATIENT
  Sex: Female

DRUGS (3)
  1. ZEJULA [Suspect]
     Active Substance: NIRAPARIB
     Dosage: 200 MG, QD
     Route: 048
  2. COVID?19 VACCINE NOS. [Suspect]
     Active Substance: COVID-19 VACCINE NOS
     Indication: COVID-19 PROPHYLAXIS
     Dosage: UNK
  3. ZEJULA [Suspect]
     Active Substance: NIRAPARIB
     Indication: OVARIAN CANCER
     Dosage: 200 MG, QD
     Route: 048
     Dates: start: 20210510

REACTIONS (10)
  - Influenza [Unknown]
  - Hypertension [Recovered/Resolved]
  - Laboratory test abnormal [Unknown]
  - Pyrexia [Unknown]
  - Herpes zoster [Not Recovered/Not Resolved]
  - Neutrophil count decreased [Unknown]
  - White coat hypertension [Unknown]
  - Lymphadenitis [Unknown]
  - Nausea [Unknown]
  - Constipation [Unknown]
